FAERS Safety Report 25160137 (Version 1)
Quarter: 2025Q2

REPORT INFORMATION
  Report Type: Spontaneous
  Country: US (occurrence: US)
  Receive Date: 20250404
  Receipt Date: 20250404
  Transmission Date: 20250717
  Serious: No
  Sender: TOLMAR
  Company Number: US-TOLMAR, INC.-25US058131

PATIENT
  Sex: Male

DRUGS (2)
  1. FENSOLVI [Suspect]
     Active Substance: LEUPROLIDE ACETATE
     Indication: Precocious puberty
     Dosage: 45 MILLIGRAM, EVERY 24 WEEKS
     Route: 058
  2. FENSOLVI [Suspect]
     Active Substance: LEUPROLIDE ACETATE
     Dosage: 45 MILLIGRAM, EVERY 24 WEEKS
     Route: 058
     Dates: start: 20240423

REACTIONS (3)
  - Intercepted product preparation error [Unknown]
  - Device malfunction [Unknown]
  - Device defective [Unknown]
